FAERS Safety Report 8810077 (Version 1)
Quarter: 2012Q4

REPORT INFORMATION
  Report Type: 
  Country: FR (occurrence: FR)
  Receive Date: 20120926
  Receipt Date: 20120926
  Transmission Date: 20130627
  Serious: Yes (Other)
  Sender: FDA-Public Use
  Company Number: PHHY2012FR082987

PATIENT
  Age: 10 Year
  Sex: Male

DRUGS (4)
  1. AMOXICILLIN SODIUM [Suspect]
     Indication: EAR INFECTION
     Dosage: 1 DF, 1 TSP and a half in the morning and in the evening
     Route: 048
     Dates: start: 20120715, end: 20120717
  2. PREDNISOLONE SANDOZ [Suspect]
     Indication: EAR INFECTION
     Dosage: 1 DF, Half tablet in the morning
     Route: 048
     Dates: start: 20120715, end: 20120717
  3. NASONEX [Concomitant]
  4. SERETIDE [Concomitant]

REACTIONS (2)
  - Generalised oedema [Recovered/Resolved]
  - Urticaria [Recovered/Resolved]
